FAERS Safety Report 9193645 (Version 2)
Quarter: 2013Q2

REPORT INFORMATION
  Report Type: Spontaneous
  Country: US (occurrence: None)
  Receive Date: 20120703
  Receipt Date: 20130107
  Transmission Date: 20140414
  Serious: No
  Sender: FDA-Public Use
  Company Number: PHEH2012US007076

PATIENT
  Age: 62 Year
  Sex: Female
  Weight: 68.5 kg

DRUGS (12)
  1. GILENYA [Suspect]
     Indication: MULTIPLE SCLEROSIS
     Route: 048
     Dates: start: 20120215, end: 20120223
  2. RESTATSIS (CICLOSPORIN) [Concomitant]
  3. PROPRANOLOL [Concomitant]
  4. LEVOTHYROXINE [Concomitant]
  5. MAGNESIUM [Concomitant]
  6. NEXIUM (ESOMEPRAZOLE MAGNESIUM) [Concomitant]
  7. VITAMIN B12 (CYANOCOBALAMIN) [Concomitant]
  8. LEXAPRO (ESCITALOPRAM) [Concomitant]
  9. MICARDIS (TELMISARTAN) [Concomitant]
  10. PROVIGIL (MODAFINIL) [Concomitant]
  11. VYTORIN (EZETIMIBE, SIMVASTATIN) [Concomitant]
  12. OMEGA 3 (FISH OIL) [Concomitant]

REACTIONS (5)
  - Pain in jaw [None]
  - Oropharyngeal pain [None]
  - Malaise [None]
  - Cough [None]
  - Infection [None]
